FAERS Safety Report 22074106 (Version 1)
Quarter: 2023Q1

REPORT INFORMATION
  Report Type: Spontaneous
  Country: US (occurrence: US)
  Receive Date: 20230308
  Receipt Date: 20230308
  Transmission Date: 20230417
  Serious: Yes (Hospitalization)
  Sender: FDA-Public Use
  Company Number: US-BAYER-2023A027749

PATIENT
  Age: 54 Year
  Sex: Male

DRUGS (1)
  1. KOGENATE FS [Suspect]
     Active Substance: ANTIHEMOPHILIC FACTOR, HUMAN RECOMBINANT
     Dosage: 3000 OR 6000 IU, PRN
     Route: 042

REACTIONS (2)
  - Accident [None]
  - Lower limb fracture [None]

NARRATIVE: CASE EVENT DATE: 20230301
